FAERS Safety Report 8306211-7 (Version None)
Quarter: 2012Q2

REPORT INFORMATION
  Report Type: 
  Country: None (occurrence: None)
  Receive Date: 20120423
  Receipt Date: 20120419
  Transmission Date: 20120825
  Serious: Yes (Hospitalization)
  Sender: FDA-Public Use
  Company Number: US-GILEAD-2012-0050093

PATIENT
  Age: 47 Year
  Sex: Female

DRUGS (3)
  1. LETAIRIS [Suspect]
     Indication: PRODUCT USED FOR UNKNOWN INDICATION
     Dosage: 10 MG, UNK
     Route: 048
     Dates: start: 20090729
  2. REMODULIN [Suspect]
  3. REVATIO [Concomitant]

REACTIONS (6)
  - HEADACHE [None]
  - PAIN IN EXTREMITY [None]
  - UNEVALUABLE EVENT [None]
  - FLUSHING [None]
  - PAIN IN JAW [None]
  - OEDEMA [None]
